FAERS Safety Report 4912317-2 (Version None)
Quarter: 2006Q1

REPORT INFORMATION
  Report Type: 
  Country: None (occurrence: None)
  Receive Date: 20060215
  Receipt Date: 20051215
  Transmission Date: 20060701
  Serious: Yes (Hospitalization)
  Sender: FDA-Public Use
  Company Number: FR-AVENTIS-200514159FR

PATIENT
  Age: 46 Year
  Sex: Male

DRUGS (21)
  1. PYOSTACINE [Suspect]
     Indication: DEVICE RELATED INFECTION
     Route: 048
     Dates: start: 20051017, end: 20051122
  2. PYOSTACINE [Suspect]
     Indication: STAPHYLOCOCCAL INFECTION
     Route: 048
     Dates: start: 20051017, end: 20051122
  3. LOVENOX [Suspect]
     Indication: DEVICE RELATED INFECTION
     Dates: start: 20050913, end: 20051004
  4. LOVENOX [Suspect]
     Indication: STAPHYLOCOCCAL INFECTION
     Dates: start: 20050913, end: 20051004
  5. LOVENOX [Suspect]
     Indication: DEVICE RELATED INFECTION
     Dates: start: 20051118, end: 20051221
  6. LOVENOX [Suspect]
     Indication: STAPHYLOCOCCAL INFECTION
     Dates: start: 20051118, end: 20051221
  7. TAVANIC [Suspect]
     Route: 048
     Dates: start: 20050926, end: 20051113
  8. FRAXODI [Suspect]
     Route: 058
     Dates: start: 20051020, end: 20051118
  9. LEXOMIL [Concomitant]
     Route: 048
  10. NEURONTIN [Concomitant]
  11. OMEPRAZOLE [Concomitant]
  12. DURAGESIC-100 [Concomitant]
     Route: 062
  13. CLONAZEPAM [Concomitant]
     Route: 048
  14. MEPRONIZINE [Concomitant]
     Route: 048
  15. ORBENINE [Concomitant]
     Indication: DEVICE RELATED INFECTION
     Dates: start: 20050914, end: 20051017
  16. ORBENINE [Concomitant]
     Indication: STAPHYLOCOCCAL INFECTION
     Dates: start: 20050914, end: 20051017
  17. FUCIDINE CAP [Concomitant]
     Dates: start: 20051114
  18. OFLOCET [Concomitant]
     Indication: DEVICE RELATED INFECTION
     Dates: start: 20051121
  19. OFLOCET [Concomitant]
     Indication: STAPHYLOCOCCAL INFECTION
     Dates: start: 20051121
  20. RIFADIN [Concomitant]
     Indication: DEVICE RELATED INFECTION
     Dates: start: 20050914, end: 20050926
  21. RIFADIN [Concomitant]
     Indication: STAPHYLOCOCCAL INFECTION
     Dates: start: 20050914, end: 20050926

REACTIONS (3)
  - EOSINOPHILIA [None]
  - PRURITUS [None]
  - SUBCUTANEOUS NODULE [None]
